FAERS Safety Report 4370211-2 (Version None)
Quarter: 2004Q2

REPORT INFORMATION
  Report Type: 
  Country: None (occurrence: None)
  Receive Date: 20040603
  Receipt Date: 20040414
  Transmission Date: 20050107
  Serious: No
  Sender: FDA-Public Use
  Company Number: US-BRISTOL-MYERS SQUIBB COMPANY-12560561

PATIENT
  Sex: Female

DRUGS (1)
  1. ABILIFY [Suspect]
     Dosage: TAKEN IN AUG-2003 THEN STOPPED.  RESTARTED AROUND MAR-2004.  DOSE REDUCED TO 5 MG/DAY.
     Route: 048
     Dates: start: 20030801

REACTIONS (3)
  - INSOMNIA [None]
  - PSYCHOTIC DISORDER [None]
  - RASH [None]
